FAERS Safety Report 4357220-4 (Version None)
Quarter: 2004Q2

REPORT INFORMATION
  Report Type: 
  Country: None (occurrence: None)
  Receive Date: 20040512
  Receipt Date: 20040512
  Transmission Date: 20050107
  Serious: Yes (Other)
  Sender: FDA-Public Use
  Company Number: None

PATIENT
  Age: 60 Year
  Sex: Female

DRUGS (1)
  1. TEQUIN [Suspect]
     Indication: SINUSITIS
     Dosage: 400 MG PO QD
     Route: 048
     Dates: start: 20040223, end: 20040224

REACTIONS (2)
  - ASTHENIA [None]
  - NAUSEA [None]
